FAERS Safety Report 21274213 (Version 2)
Quarter: 2022Q3

REPORT INFORMATION
  Report Type: Spontaneous
  Country: DE (occurrence: DE)
  Receive Date: 20220831
  Receipt Date: 20220922
  Transmission Date: 20221027
  Serious: Yes (Other)
  Sender: FDA-Public Use
  Company Number: None

PATIENT
  Age: 25 Year
  Sex: Female
  Weight: 70 kg

DRUGS (3)
  1. CYTOTEC [Suspect]
     Active Substance: MISOPROSTOL
     Indication: Labour induction
     Dosage: UNK
     Route: 048
     Dates: start: 20071029, end: 20071030
  2. CYTOTEC [Suspect]
     Active Substance: MISOPROSTOL
     Dosage: 25 UG
     Route: 048
     Dates: start: 20071030, end: 20071030
  3. CYTOTEC [Suspect]
     Active Substance: MISOPROSTOL
     Dosage: 50 UG
     Route: 048
     Dates: start: 20071030, end: 20071030

REACTIONS (9)
  - Off label use [Unknown]
  - Uterine atony [Unknown]
  - Premature separation of placenta [Recovered/Resolved with Sequelae]
  - Postpartum haemorrhage [Recovered/Resolved with Sequelae]
  - Complication of delivery [Recovered/Resolved with Sequelae]
  - Uterine tachysystole [Recovered/Resolved with Sequelae]
  - Vacuum extractor delivery [Recovered/Resolved with Sequelae]
  - Retained placenta operation [Recovered/Resolved with Sequelae]
  - Retained placenta or membranes [Recovered/Resolved with Sequelae]

NARRATIVE: CASE EVENT DATE: 20071029
